FAERS Safety Report 10256313 (Version 1)
Quarter: 2014Q2

REPORT INFORMATION
  Report Type: Spontaneous
  Country: GR (occurrence: GR)
  Receive Date: 20140624
  Receipt Date: 20140624
  Transmission Date: 20141212
  Serious: Yes (Hospitalization)
  Sender: FDA-Public Use
  Company Number: PHHY2014GR077513

PATIENT
  Age: 76 Year
  Sex: Male

DRUGS (2)
  1. DIOVAN [Suspect]
     Dosage: 160 MG, UNK
  2. CO-DIOVAN [Suspect]

REACTIONS (4)
  - Cardiac arrest [Unknown]
  - Loss of consciousness [Unknown]
  - Vertigo [Unknown]
  - Blood pressure decreased [Unknown]
